FAERS Safety Report 6456547-X (Version None)
Quarter: 2009Q4

REPORT INFORMATION
  Report Type: 
  Country: None (occurrence: None)
  Receive Date: 20091125
  Receipt Date: 20090507
  Transmission Date: 20100525
  Serious: No
  Sender: FDA-Public Use
  Company Number: US-BAYER-200822690NA

PATIENT
  Age: 34 Year
  Sex: Female
  Weight: 64 kg

DRUGS (2)
  1. MAGNEVIST [Suspect]
     Indication: NUCLEAR MAGNETIC RESONANCE IMAGING BRAIN
     Dosage: TOTAL DAILY DOSE: 13 ML
     Route: 042
     Dates: start: 20080507, end: 20080507
  2. MAGNEVIST [Suspect]
     Dosage: TOTAL DAILY DOSE: 14 ML
     Route: 042
     Dates: start: 20090507, end: 20090507

REACTIONS (2)
  - NAUSEA [None]
  - VOMITING [None]
